FAERS Safety Report 5844513-4 (Version None)
Quarter: 2008Q3

REPORT INFORMATION
  Report Type: 
  Country: None (occurrence: None)
  Receive Date: 20080812
  Receipt Date: 20080729
  Transmission Date: 20090109
  Serious: Yes (Hospitalization)
  Sender: FDA-Public Use
  Company Number: 235867J08USA

PATIENT
  Age: 68 Year
  Sex: Female
  Weight: 95.2554 kg

DRUGS (19)
  1. REBIF [Suspect]
     Indication: MULTIPLE SCLEROSIS
     Dosage: 44 MCG, 3 IN 1 WEEKS, SUBCUTANEOUS
     Route: 058
     Dates: start: 20050208
  2. LASIX (FUROSEMIDE /00032601/) [Concomitant]
  3. IMDUR [Concomitant]
  4. CATAPRES [Concomitant]
  5. PLAVIX [Concomitant]
  6. HUMALOG [Concomitant]
  7. METFORMIN HCL [Concomitant]
  8. PROZAC [Concomitant]
  9. XANAX [Concomitant]
  10. LUNESTA [Concomitant]
  11. PREVACID [Concomitant]
  12. NEURONTIN [Concomitant]
  13. DITROPAN [Concomitant]
  14. ASPIRIN [Concomitant]
  15. TOPROL-XL [Concomitant]
  16. ATACAND (CANDESARTN CILEXETIL) [Concomitant]
  17. COLCHICINE (COLCHICINE) [Concomitant]
  18. PROCRIT [Concomitant]
  19. CRESTOR [Concomitant]

REACTIONS (6)
  - CONDITION AGGRAVATED [None]
  - GASTROINTESTINAL INFECTION [None]
  - INSOMNIA [None]
  - MOUTH ULCERATION [None]
  - MULTIPLE SCLEROSIS [None]
  - VIRAL INFECTION [None]
